FAERS Safety Report 9799334 (Version 2)
Quarter: 2014Q1

REPORT INFORMATION
  Report Type: Spontaneous
  Country: US (occurrence: US)
  Receive Date: 20140106
  Receipt Date: 20140117
  Transmission Date: 20141002
  Serious: Yes (Hospitalization, Other)
  Sender: FDA-Public Use
  Company Number: US-GILEAD-2014-0091150

PATIENT
  Age: 59 Year
  Sex: Female

DRUGS (12)
  1. RANEXA [Suspect]
     Indication: ANGINA PECTORIS
     Dosage: 500 MG, BID
     Route: 048
     Dates: start: 20130822, end: 20131029
  2. RANEXA [Suspect]
     Indication: CORONARY ARTERY DISEASE
  3. ASA [Suspect]
     Indication: ANGINA PECTORIS
     Dosage: 81 MG, UNK
     Route: 048
     Dates: start: 20130430, end: 20131029
  4. ASA [Suspect]
     Indication: CORONARY ARTERY DISEASE
  5. PLAVIX [Suspect]
     Indication: ANGINA PECTORIS
     Dosage: 75 MG, UNK
     Route: 048
     Dates: start: 20130822, end: 20130829
  6. PLAVIX [Suspect]
     Indication: CORONARY ARTERY DISEASE
  7. IMDUR [Concomitant]
     Indication: ANGINA PECTORIS
     Dosage: 30 MG, UNK
     Route: 048
     Dates: start: 20130430, end: 20131029
  8. IMDUR [Concomitant]
     Indication: CORONARY ARTERY DISEASE
  9. HYDROCHLOROTHIAZIDE [Concomitant]
     Indication: HYPERTENSION
     Dosage: 12.5 MG, UNK
     Route: 048
  10. AMLODIPINE [Concomitant]
     Indication: HYPERTENSION
     Dosage: 10 MG, UNK
     Route: 048
  11. MICARDIS [Concomitant]
     Indication: HYPERTENSION
     Dosage: 80 MG, UNK
     Route: 048
  12. PRAVASTATIN [Concomitant]
     Indication: HYPERLIPIDAEMIA
     Dosage: 20 MG, UNK
     Route: 048

REACTIONS (13)
  - Postmenopausal haemorrhage [Recovered/Resolved]
  - Pelvic infection [Unknown]
  - Ovarian abscess [Unknown]
  - Sepsis [Unknown]
  - Pelvic mass [Unknown]
  - Diverticulitis [Not Recovered/Not Resolved]
  - Pelvic adhesions [Unknown]
  - Unevaluable event [Unknown]
  - Functional gastrointestinal disorder [Unknown]
  - Malaise [Unknown]
  - Anaemia [Unknown]
  - Syncope [Unknown]
  - Vomiting [Unknown]
